FAERS Safety Report 7159348-2 (Version None)
Quarter: 2010Q4

REPORT INFORMATION
  Report Type: 
  Country: None (occurrence: None)
  Receive Date: 20101214
  Receipt Date: 20100823
  Transmission Date: 20110411
  Serious: No
  Sender: FDA-Public Use
  Company Number: US-ASTRAZENECA-2010SE39529

PATIENT
  Age: 85 Year
  Sex: Female
  Weight: 58.1 kg

DRUGS (1)
  1. CRESTOR [Suspect]
     Indication: HYPERCHOLESTEROLAEMIA
     Route: 048
     Dates: start: 20100701

REACTIONS (2)
  - ASTHENIA [None]
  - PALPITATIONS [None]
